FAERS Safety Report 4272644-1 (Version None)
Quarter: 2004Q1

REPORT INFORMATION
  Report Type: 
  Country: None (occurrence: None)
  Receive Date: 20040115
  Receipt Date: 20040115
  Transmission Date: 20041129
  Serious: Yes (Hospitalization, Disabling)
  Sender: FDA-Public Use
  Company Number: None

PATIENT
  Age: 40 Year
  Sex: Female
  Weight: 82.5547 kg

DRUGS (1)
  1. AVELOX [Suspect]
     Indication: KIDNEY INFECTION
     Dosage: 1 TABLET 1 TIME DAI ORAL
     Route: 048
     Dates: start: 20031216, end: 20031216

REACTIONS (12)
  - CEREBROVASCULAR ACCIDENT [None]
  - CONFUSIONAL STATE [None]
  - DEPRESSED LEVEL OF CONSCIOUSNESS [None]
  - EAR PAIN [None]
  - EYE PAIN [None]
  - HEADACHE [None]
  - HYPERTENSION [None]
  - PARALYSIS [None]
  - STARING [None]
  - TIC [None]
  - TREMOR [None]
  - VOCAL CORD DISORDER [None]
